FAERS Safety Report 12182535 (Version 1)
Quarter: 2016Q1

REPORT INFORMATION
  Report Type: Spontaneous
  Country: IT (occurrence: IT)
  Receive Date: 20160316
  Receipt Date: 20160316
  Transmission Date: 20160526
  Serious: Yes (Hospitalization)
  Sender: FDA-Public Use
  Company Number: IT-GLAXOSMITHKLINE-IT2016GSK036202

PATIENT
  Age: 44 Year
  Sex: Female

DRUGS (5)
  1. AULIN [Suspect]
     Active Substance: NIMESULIDE
     Indication: MIGRAINE
     Dosage: 100 MG, QD
     Route: 048
     Dates: start: 20160101, end: 20160229
  2. IMIGRAN [Suspect]
     Active Substance: SUMATRIPTAN SUCCINATE
     Indication: MIGRAINE
     Dosage: 6 MG, QD
     Route: 058
     Dates: start: 20160101, end: 20160229
  3. SEROQUEL [Concomitant]
     Active Substance: QUETIAPINE FUMARATE
  4. VENLAFAXINA [Concomitant]
     Active Substance: VENLAFAXINE HYDROCHLORIDE
  5. BRUFEN [Suspect]
     Active Substance: IBUPROFEN
     Indication: MIGRAINE
     Dosage: 600 MG, QD
     Route: 048
     Dates: start: 20160101, end: 20160229

REACTIONS (3)
  - Overdose [Unknown]
  - Hepatic enzyme increased [Recovering/Resolving]
  - Migraine [Recovering/Resolving]

NARRATIVE: CASE EVENT DATE: 20160229
